FAERS Safety Report 8166570-5 (Version None)
Quarter: 2012Q1

REPORT INFORMATION
  Report Type: 
  Country: None (occurrence: None)
  Receive Date: 20120227
  Receipt Date: 20111109
  Transmission Date: 20120608
  Serious: Yes (Other)
  Sender: FDA-Public Use
  Company Number: US-BRISTOL-MYERS SQUIBB COMPANY-16221798

PATIENT
  Age: 55 Year
  Sex: Female
  Weight: 53 kg

DRUGS (2)
  1. CARBOPLATIN [Suspect]
     Indication: OVARIAN CANCER
     Dosage: 1DF = STARTED AT 6, LATER REDUCED TO 5, UNITS NOS. INFUSION
     Dates: start: 20110912
  2. TAXOL [Suspect]
     Indication: OVARIAN CANCER
     Dosage: INFUSION
     Dates: start: 20110912

REACTIONS (1)
  - DIARRHOEA [None]
